FAERS Safety Report 7506676-4 (Version None)
Quarter: 2011Q2

REPORT INFORMATION
  Report Type: 
  Country: None (occurrence: None)
  Receive Date: 20110526
  Receipt Date: 20110516
  Transmission Date: 20111010
  Serious: No
  Sender: FDA-Public Use
  Company Number: US-ELI_LILLY_AND_COMPANY-US201104001102

PATIENT
  Age: 37 Year
  Sex: Male

DRUGS (6)
  1. LISINOPRIL [Concomitant]
  2. STRATTERA [Suspect]
     Dosage: 40 MG, QD
  3. MULTI-VITAMIN [Concomitant]
  4. STRATTERA [Suspect]
     Indication: ATTENTION DEFICIT/HYPERACTIVITY DISORDER
     Dosage: 20 MG, QD
     Dates: start: 20080101
  5. NEURONTIN [Concomitant]
  6. COREG [Concomitant]
     Indication: EJECTION FRACTION DECREASED
     Dosage: UNK
     Dates: start: 20070101

REACTIONS (9)
  - PRESYNCOPE [None]
  - FALL [None]
  - AGITATION [None]
  - DISTURBANCE IN ATTENTION [None]
  - IRRITABILITY [None]
  - PANIC ATTACK [None]
  - VISUAL IMPAIRMENT [None]
  - VOMITING [None]
  - HOSTILITY [None]
